FAERS Safety Report 5426502-7 (Version None)
Quarter: 2007Q3

REPORT INFORMATION
  Report Type: 
  Country: None (occurrence: None)
  Receive Date: 20070731
  Receipt Date: 20070625
  Transmission Date: 20080115
  Serious: No
  Sender: FDA-Public Use
  Company Number: US200706005177

PATIENT
  Sex: Female

DRUGS (2)
  1. BYETTA [Suspect]
     Dosage: 5 UG/2D, SUBCUTANEOUS, 10 UG/2D, SUBCUTANEOUS, 10 UG/2D, SUBCUTANEOUS
     Route: 058
     Dates: start: 20070501
  2. BYETTA [Suspect]
     Dosage: 5 UG/2D, SUBCUTANEOUS, 10 UG/2D, SUBCUTANEOUS, 10 UG/2D, SUBCUTANEOUS
     Route: 058
     Dates: start: 20070601

REACTIONS (3)
  - BLOOD GLUCOSE ABNORMAL [None]
  - INCREASED APPETITE [None]
  - INJECTION SITE IRRITATION [None]
